FAERS Safety Report 9903249 (Version 1)
Quarter: 2014Q1

REPORT INFORMATION
  Report Type: Spontaneous
  Country: US (occurrence: US)
  Receive Date: 20140217
  Receipt Date: 20140217
  Transmission Date: 20141002
  Serious: No
  Sender: FDA-Public Use
  Company Number: US-ASTRAZENECA-2013SE51746

PATIENT
  Age: 57 Year
  Sex: Female
  Weight: 74.8 kg

DRUGS (7)
  1. ATENOLOL [Suspect]
     Route: 048
  2. NEXIUM [Suspect]
     Route: 048
  3. SYNTHROID [Suspect]
     Indication: HYPOTHYROIDISM
     Route: 065
  4. SYNTHROID [Suspect]
     Indication: HYPOTHYROIDISM
     Route: 065
     Dates: start: 201303, end: 201303
  5. SYNTHROID [Suspect]
     Indication: HYPOTHYROIDISM
     Route: 065
     Dates: start: 201303
  6. ARMOUR THYROID [Suspect]
     Route: 065
  7. TRAZEDONE [Concomitant]

REACTIONS (4)
  - Drug hypersensitivity [Unknown]
  - Pruritus [Unknown]
  - Rash [Unknown]
  - Pruritus [Unknown]
